FAERS Safety Report 25955046 (Version 1)
Quarter: 2025Q4

REPORT INFORMATION
  Report Type: Report from Study
  Country: CN (occurrence: CN)
  Receive Date: 20251024
  Receipt Date: 20251024
  Transmission Date: 20260117
  Serious: Yes (Other)
  Sender: ROCHE
  Company Number: CN-ROCHE-10000413440

PATIENT

DRUGS (3)
  1. RITUXIMAB [Suspect]
     Active Substance: RITUXIMAB
     Indication: Glomerulonephritis membranous
     Dosage: ON THE FIRST AND 15TH DAY OF TREATMENT
     Route: 042
  2. RITUXIMAB [Suspect]
     Active Substance: RITUXIMAB
     Dosage: 4 WEEKS
     Route: 042
  3. TACROLIMUS [Suspect]
     Active Substance: TACROLIMUS
     Indication: Glomerulonephritis membranous
     Dosage: INTERVALS OF 12 HOURS
     Route: 048

REACTIONS (13)
  - Off label use [Unknown]
  - Infection [Unknown]
  - Respiratory tract infection [Unknown]
  - Skin infection [Unknown]
  - Oedema [Unknown]
  - Chronic kidney disease [Unknown]
  - Cerebrovascular accident [Unknown]
  - Embolism [Unknown]
  - Acute kidney injury [Unknown]
  - Diabetes mellitus [Unknown]
  - White blood cell count decreased [Unknown]
  - Arteriosclerosis coronary artery [Unknown]
  - Injection related reaction [Unknown]
